FAERS Safety Report 4525041-5 (Version None)
Quarter: 2004Q4

REPORT INFORMATION
  Report Type: 
  Country: None (occurrence: None)
  Receive Date: 20041210
  Receipt Date: 20041129
  Transmission Date: 20050328
  Serious: Yes (Hospitalization)
  Sender: FDA-Public Use
  Company Number: 2004102402

PATIENT
  Age: 90 Year
  Sex: Female
  Weight: 51.7101 kg

DRUGS (3)
  1. TOLTERODINE TARTRATE [Suspect]
     Indication: HYPERTONIC BLADDER
     Dosage: 4 MG (4 MG), ORAL
     Route: 048
     Dates: start: 20020101
  2. LEVOTHYROXINE SODIUM [Concomitant]
  3. RIVASTIGMINE TARTRATE (RIVASTIGMINE TARTRATE) [Concomitant]

REACTIONS (4)
  - DEHYDRATION [None]
  - POLLAKIURIA [None]
  - URINARY INCONTINENCE [None]
  - URINARY TRACT INFECTION [None]
